FAERS Safety Report 16243654 (Version 2)
Quarter: 2019Q2

REPORT INFORMATION
  Report Type: Spontaneous
  Country: US (occurrence: US)
  Receive Date: 20190426
  Receipt Date: 20190604
  Transmission Date: 20190711
  Serious: No
  Sender: FDA-Public Use
  Company Number: US-PFIZER INC-2019172628

PATIENT
  Age: 27 Year
  Sex: Female

DRUGS (7)
  1. TOPAMAX [Suspect]
     Active Substance: TOPIRAMATE
     Indication: HEADACHE
     Dosage: 300 MG, 1X/DAY (2X 150 MG/DAY)
  2. PRISTIQ EXTENDED-RELEASE [Suspect]
     Active Substance: DESVENLAFAXINE SUCCINATE
     Dosage: 50 MG, DAILY
  3. COQ10 [UBIDECARENONE] [Suspect]
     Active Substance: UBIDECARENONE
     Indication: SUPPLEMENTATION THERAPY
     Dosage: 50 MG, UNK
  4. MAGNESIUM [Suspect]
     Active Substance: MAGNESIUM
     Indication: HEADACHE
  5. MAGNESIUM [Suspect]
     Active Substance: MAGNESIUM
     Indication: SUPPLEMENTATION THERAPY
     Dosage: 550 MG, UNK
  6. PRISTIQ EXTENDED-RELEASE [Suspect]
     Active Substance: DESVENLAFAXINE SUCCINATE
     Indication: DEPRESSION
     Dosage: 25 MG, DAILY
  7. COQ10 [UBIDECARENONE] [Suspect]
     Active Substance: UBIDECARENONE
     Indication: HEADACHE

REACTIONS (4)
  - Therapeutic product effect incomplete [Unknown]
  - Joint swelling [Not Recovered/Not Resolved]
  - Taste disorder [Recovered/Resolved]
  - Peripheral swelling [Not Recovered/Not Resolved]
